FAERS Safety Report 7270022-4 (Version None)
Quarter: 2011Q1

REPORT INFORMATION
  Report Type: 
  Country: None (occurrence: None)
  Receive Date: 20110124
  Receipt Date: 20110124
  Transmission Date: 20110831
  Serious: Yes (Other)
  Sender: FDA-Public Use
  Company Number: None

PATIENT
  Sex: Female
  Weight: 54.4316 kg

DRUGS (1)
  1. ROBIVACAINE 0.5% [Suspect]
     Indication: SURGERY
     Dates: start: 20101207

REACTIONS (3)
  - OPEN WOUND [None]
  - SURGERY [None]
  - INJECTION SITE DISCOLOURATION [None]
